FAERS Safety Report 16047418 (Version 1)
Quarter: 2019Q1

REPORT INFORMATION
  Report Type: Spontaneous
  Country: US (occurrence: US)
  Receive Date: 20190307
  Receipt Date: 20190307
  Transmission Date: 20190418
  Serious: Yes (Hospitalization, Other)
  Sender: FDA-Public Use
  Company Number: US-JNJFOC-20190303383

PATIENT
  Sex: Male
  Weight: 78.93 kg

DRUGS (1)
  1. INVOKANA [Suspect]
     Active Substance: CANAGLIFLOZIN
     Indication: DIABETES MELLITUS
     Route: 048

REACTIONS (6)
  - Toe amputation [Unknown]
  - Localised infection [Unknown]
  - Diabetic ulcer [Unknown]
  - Osteomyelitis [Unknown]
  - Dry gangrene [Unknown]
  - Cellulitis [Unknown]

NARRATIVE: CASE EVENT DATE: 2015
